FAERS Safety Report 8413275-9 (Version None)
Quarter: 2012Q2

REPORT INFORMATION
  Report Type: 
  Country: None (occurrence: None)
  Receive Date: 20120605
  Receipt Date: 20120530
  Transmission Date: 20120825
  Serious: Yes (Hospitalization, Other)
  Sender: FDA-Public Use
  Company Number: PHHY2012BR047229

PATIENT
  Sex: Female
  Weight: 130 kg

DRUGS (4)
  1. SIMVASTATIN [Concomitant]
     Indication: BLOOD CHOLESTEROL INCREASED
     Dosage: 1 DF, UNK
  2. OMEPRAZOLE [Concomitant]
     Indication: GASTRITIS PROPHYLAXIS
  3. MODURETIC 5-50 [Concomitant]
     Indication: FLUID RETENTION
     Dosage: 50 MG, DAILY
     Dates: start: 19960101
  4. EXFORGE [Suspect]
     Indication: HYPERTENSION
     Dosage: 1 DF (80/5 MG), DAILY
     Route: 048

REACTIONS (3)
  - GLUCOSE TOLERANCE IMPAIRED [None]
  - BREAST CANCER [None]
  - RENAL CANCER [None]
